FAERS Safety Report 9107859 (Version 1)
Quarter: 2013Q1

REPORT INFORMATION
  Report Type: Not Available
  Country: GB (occurrence: GB)
  Receive Date: 20130221
  Receipt Date: 20130221
  Transmission Date: 20140127
  Serious: Yes (Life-Threatening, Hospitalization)
  Sender: FDA-Public Use
  Company Number: GB-PURDUE-GBR-2013-0013199

PATIENT
  Age: 91 Year
  Sex: Male
  Weight: 80 kg

DRUGS (42)
  1. BUTRANS [Suspect]
     Indication: ARTHRALGIA
     Dosage: 5 MCG, Q1H
     Route: 062
     Dates: start: 20130116
  2. BUTRANS [Suspect]
     Indication: OSTEOARTHRITIS
  3. AMITRIPTYLINE HYDROCHLORIDE [Concomitant]
     Dosage: UNK
     Dates: start: 20121231
  4. AMITRIPTYLINE HYDROCHLORIDE [Concomitant]
     Dosage: UNK
     Dates: start: 20121009, end: 20121116
  5. AMOXICILLIN [Concomitant]
     Dosage: UNK
     Dates: start: 20121030, end: 20121104
  6. ASPIRIN [Concomitant]
     Dosage: UNK
     Dates: start: 20121019
  7. CITALOPRAM [Concomitant]
     Dosage: UNK
     Dates: start: 20121019
  8. CLOPIDOGREL [Concomitant]
     Dosage: UNK
     Dates: start: 20121019
  9. CLOTRIMAZOLE [Concomitant]
     Dosage: UNK
     Dates: start: 20121214, end: 20121221
  10. CLOTRIMAZOLE [Concomitant]
     Dosage: UNK
     Dates: start: 20121101, end: 20121108
  11. AMOXICILLIN\CLAVULANATE POTASSIUM [Concomitant]
     Dosage: UNK
     Dates: start: 20121218, end: 20121225
  12. AMOXICILLIN\CLAVULANATE POTASSIUM [Concomitant]
     Dosage: UNK
     Dates: start: 20121101, end: 20121108
  13. CODEINE PHOSPHATE [Concomitant]
     Dosage: UNK
     Dates: start: 20121019, end: 20121108
  14. DEPO-MEDRONE [Concomitant]
     Dosage: UNK
     Dates: start: 20121029, end: 20121030
  15. DERMOL                             /01330701/ [Concomitant]
     Dosage: UNK
     Dates: start: 20121019, end: 20121118
  16. DIAZEPAM [Concomitant]
     Dosage: UNK
     Dates: start: 20130116
  17. DIGOXIN [Concomitant]
     Dosage: UNK
     Dates: start: 20130110, end: 20130124
  18. DIGOXIN [Concomitant]
     Dosage: UNK
     Dates: start: 20121214, end: 20121228
  19. DIGOXIN [Concomitant]
     Dosage: UNK
     Dates: start: 20121116, end: 20121130
  20. DIGOXIN [Concomitant]
     Dosage: UNK
     Dates: start: 20121019, end: 20121102
  21. DIPROBASE                          /01132701/ [Concomitant]
     Dosage: UNK
     Dates: start: 20121019
  22. DOUBLEBASE [Concomitant]
     Dosage: UNK
     Dates: start: 20130110
  23. DOUBLEBASE [Concomitant]
     Dosage: UNK
     Dates: start: 20121207, end: 20130104
  24. ENALAPRIL [Concomitant]
     Dosage: UNK
     Dates: start: 20121019
  25. FINASTERIDE [Concomitant]
     Dosage: UNK
     Dates: start: 20121019
  26. FUROSEMIDE [Concomitant]
     Dosage: UNK
     Dates: start: 20121101
  27. LAXIDO [Concomitant]
     Dosage: UNK
     Dates: start: 20121214, end: 20130111
  28. LAXIDO [Concomitant]
     Dosage: UNK
     Dates: start: 20121019, end: 20121116
  29. LIDOCAINE [Concomitant]
     Dosage: UNK
     Dates: start: 20121029, end: 20121030
  30. NYSTAN [Concomitant]
     Dosage: UNK
     Dates: start: 20121101, end: 20121111
  31. OMEPRAZOLE [Concomitant]
     Dosage: UNK
     Dates: start: 20121019
  32. PARACETAMOL [Concomitant]
     Dosage: UNK
     Dates: start: 20130110
  33. PARACETAMOL [Concomitant]
     Dosage: UNK
     Dates: start: 20121019, end: 20121116
  34. PIROXICAM [Concomitant]
     Dosage: UNK
     Dates: start: 20121214, end: 20130113
  35. PIROXICAM [Concomitant]
     Dosage: UNK
     Dates: start: 20121019, end: 20121128
  36. SALBUTAMOL [Concomitant]
     Dosage: UNK
     Dates: start: 20121231
  37. SALBUTAMOL [Concomitant]
     Dosage: UNK
     Dates: start: 20121218, end: 20121223
  38. SALBUTAMOL [Concomitant]
     Dosage: UNK
     Dates: start: 20121101, end: 20121106
  39. SENNA                              /00142201/ [Concomitant]
     Dosage: UNK
     Dates: start: 20121019
  40. SIMVASTATIN [Concomitant]
     Dosage: UNK
     Dates: start: 20121019
  41. TAMSULOSIN HYDROCHLORIDE [Concomitant]
     Dosage: UNK
     Dates: start: 20121019
  42. TRIMETHOPRIM [Concomitant]
     Dosage: UNK
     Dates: start: 20121025, end: 20121101

REACTIONS (4)
  - Toxicity to various agents [Recovered/Resolved]
  - Apnoeic attack [Unknown]
  - Confusional state [Unknown]
  - Miosis [Unknown]
